FAERS Safety Report 7808143-7 (Version None)
Quarter: 2011Q4

REPORT INFORMATION
  Report Type: 
  Country: None (occurrence: None)
  Receive Date: 20111011
  Receipt Date: 20110926
  Transmission Date: 20120403
  Serious: Yes (Other)
  Sender: FDA-Public Use
  Company Number: GB-ROCHE-1003212

PATIENT
  Sex: Male

DRUGS (7)
  1. LUCENTIS [Suspect]
     Indication: PRODUCT USED FOR UNKNOWN INDICATION
     Route: 050
  2. GLYCERYL TRINITRATE [Concomitant]
  3. LANSOPRAZOLE [Concomitant]
  4. SIMVASTATIN [Concomitant]
  5. ISOSORBIDE MONONITRATE [Concomitant]
  6. WARFARIN SODIUM [Concomitant]
  7. DILTIAZEM HCL [Concomitant]

REACTIONS (1)
  - HAEMATOLOGICAL MALIGNANCY [None]
